FAERS Safety Report 6910928-6 (Version None)
Quarter: 2010Q3

REPORT INFORMATION
  Report Type: 
  Country: None (occurrence: None)
  Receive Date: 20100806
  Receipt Date: 20100730
  Transmission Date: 20110219
  Serious: Yes (Other)
  Sender: FDA-Public Use
  Company Number: A0814958A

PATIENT
  Age: 62 Year
  Sex: Female

DRUGS (2)
  1. AVANDIA [Suspect]
     Indication: DIABETES MELLITUS
     Route: 048
     Dates: start: 20010430, end: 20051023
  2. AVANDARYL [Suspect]
     Route: 048
     Dates: start: 20060524, end: 20070228

REACTIONS (1)
  - MYOCARDIAL INFARCTION [None]
